FAERS Safety Report 14914952 (Version 4)
Quarter: 2018Q3

REPORT INFORMATION
  Report Type: Report from Study
  Country: None (occurrence: FR)
  Receive Date: 20180518
  Receipt Date: 20180905
  Transmission Date: 20181010
  Serious: Yes (Hospitalization, Other)
  Sender: FDA-Public Use
  Company Number: FR-ABBVIE-18P-056-2353375-00

PATIENT
  Age: 81 Year
  Sex: Male
  Weight: 76 kg

DRUGS (22)
  1. NORMAL SALINE SOLUTION (0.9% SODIUM CHLORIDE) [Concomitant]
     Indication: PROPHYLAXIS
     Route: 042
     Dates: start: 20180430, end: 20180514
  2. DALACINE [Concomitant]
     Active Substance: CLINDAMYCIN
     Indication: STAPHYLOCOCCUS TEST POSITIVE
  3. VANCOMYCIN [Concomitant]
     Active Substance: VANCOMYCIN
     Indication: STAPHYLOCOCCUS TEST POSITIVE
  4. VENETOCLAX. [Suspect]
     Active Substance: VENETOCLAX
     Dosage: DAYS 1  28 OF 28 DAY CYCLE.
     Route: 048
     Dates: start: 20180502, end: 20180518
  5. RASBURICASE [Concomitant]
     Active Substance: RASBURICASE
     Indication: PROPHYLAXIS
     Route: 042
     Dates: start: 20180430, end: 20180501
  6. TAZOCILLINE [Concomitant]
     Active Substance: PIPERACILLIN SODIUM\TAZOBACTAM SODIUM
     Indication: PHLEBITIS
     Route: 042
     Dates: start: 20180512, end: 20180519
  7. VANCOMYCIN [Concomitant]
     Active Substance: VANCOMYCIN
     Indication: PHLEBITIS
     Route: 042
     Dates: start: 20180513, end: 20180516
  8. AZACITIDINE. [Suspect]
     Active Substance: AZACITIDINE
     Indication: ACUTE MYELOID LEUKAEMIA
     Dosage: DAY 1?7 OF EACH 28?DAY CYCLE.
     Route: 058
     Dates: start: 20180430
  9. RASILEZ [Concomitant]
     Active Substance: ALISKIREN
     Indication: HYPERTENSION
     Route: 048
     Dates: start: 2008, end: 20180430
  10. ZOPHREN [Concomitant]
     Active Substance: ONDANSETRON
     Indication: NAUSEA
     Route: 048
     Dates: start: 20180501
  11. AUGMENTIN [Concomitant]
     Active Substance: AMOXICILLIN\CLAVULANATE POTASSIUM
     Indication: PHLEBITIS
     Route: 048
     Dates: start: 20180520
  12. AUGMENTIN [Concomitant]
     Active Substance: AMOXICILLIN\CLAVULANATE POTASSIUM
     Indication: STAPHYLOCOCCUS TEST POSITIVE
  13. VENETOCLAX. [Suspect]
     Active Substance: VENETOCLAX
     Indication: ACUTE MYELOID LEUKAEMIA
     Dosage: DAYS 1  28 OF 28 DAY CYCLE.
     Route: 048
     Dates: start: 20180430, end: 20180430
  14. VENETOCLAX. [Suspect]
     Active Substance: VENETOCLAX
     Dosage: DAYS 1  28 OF 28 DAY CYCLE.
     Route: 048
     Dates: start: 20180519
  15. ECONAZOLE [Concomitant]
     Active Substance: ECONAZOLE
     Indication: FUNGAL INFECTION
     Route: 003
     Dates: start: 20180430
  16. PANTOPRAZOLE [Concomitant]
     Active Substance: PANTOPRAZOLE
     Indication: DYSPEPSIA
     Route: 048
     Dates: start: 20180506
  17. DALACINE [Concomitant]
     Active Substance: CLINDAMYCIN
     Indication: PHLEBITIS
     Route: 048
     Dates: start: 20180517
  18. TAZOCILLINE [Concomitant]
     Active Substance: PIPERACILLIN SODIUM\TAZOBACTAM SODIUM
     Indication: STAPHYLOCOCCUS TEST POSITIVE
  19. VENETOCLAX. [Suspect]
     Active Substance: VENETOCLAX
     Dosage: DAYS 1  28 OF 28 DAY CYCLE.
     Route: 048
     Dates: start: 20180501, end: 20180501
  20. MOVICOL [Concomitant]
     Active Substance: POLYETHYLENE GLYCOL 3350\POTASSIUM CHLORIDE\SODIUM BICARBONATE\SODIUM CHLORIDE
     Indication: CONSTIPATION
     Route: 048
     Dates: start: 20180430
  21. TOCO [Concomitant]
     Active Substance: UNSPECIFIED INGREDIENT
     Indication: VITAMIN D DEFICIENCY
     Route: 048
     Dates: start: 20180430
  22. LEDERFOLINE [Concomitant]
     Active Substance: LEUCOVORIN CALCIUM
     Indication: PROPHYLAXIS
     Route: 048
     Dates: start: 20180517

REACTIONS (3)
  - Acute kidney injury [Recovered/Resolved]
  - Pneumocystis jirovecii pneumonia [Not Recovered/Not Resolved]
  - Aspergillus infection [Not Recovered/Not Resolved]

NARRATIVE: CASE EVENT DATE: 20180501
